FAERS Safety Report 22115931 (Version 1)
Quarter: 2023Q1

REPORT INFORMATION
  Report Type: Spontaneous
  Country: US (occurrence: None)
  Receive Date: 20230319
  Receipt Date: 20230319
  Transmission Date: 20230418
  Serious: No
  Sender: FDA-Public Use
  Company Number: None

PATIENT
  Age: 72 Year
  Sex: Male
  Weight: 83.25 kg

DRUGS (1)
  1. CHOLESTYRAMINE [Suspect]
     Active Substance: CHOLESTYRAMINE
     Indication: Pruritus
     Dosage: 42 4 GRAMS POWDER TWICE A DAY ? ?
     Dates: start: 20230313, end: 20230315

REACTIONS (7)
  - Drug ineffective [None]
  - Urticaria [None]
  - Rash [None]
  - Rash [None]
  - Skin fissures [None]
  - Skin exfoliation [None]
  - Pruritus [None]

NARRATIVE: CASE EVENT DATE: 20230315
